FAERS Safety Report 18926629 (Version 8)
Quarter: 2021Q2

REPORT INFORMATION
  Report Type: Spontaneous
  Country: US (occurrence: US)
  Receive Date: 20210223
  Receipt Date: 20210623
  Transmission Date: 20210717
  Serious: Yes (Other)
  Sender: FDA-Public Use
  Company Number: US-AUROBINDO-AUR-APL-2021-006736

PATIENT
  Age: 76 Year
  Sex: Female

DRUGS (6)
  1. IBANDRONATE SODIUM TABLET 150 MG [Suspect]
     Active Substance: IBANDRONATE SODIUM
     Dosage: 1 DOSAGE FORM FOR EVERY 30 DAYS
     Route: 048
     Dates: start: 202009
  2. IBANDRONATE SODIUM TABLET 150 MG [Suspect]
     Active Substance: IBANDRONATE SODIUM
     Dosage: 1 DOSAGE FORM FOR EVERY 30 DAYS
     Route: 048
     Dates: start: 202010
  3. IBANDRONATE SODIUM TABLET 150 MG [Suspect]
     Active Substance: IBANDRONATE SODIUM
     Indication: OSTEOPOROSIS
     Dosage: 1 DOSAGE FORM FOR EVERY 30 DAYS
     Route: 048
     Dates: start: 202008
  4. IBANDRONATE SODIUM TABLET 150 MG [Suspect]
     Active Substance: IBANDRONATE SODIUM
     Dosage: 1 DOSAGE FORM FOR EVERY 30 DAYS
     Route: 048
     Dates: start: 202011
  5. IBANDRONATE SODIUM TABLET 150 MG [Suspect]
     Active Substance: IBANDRONATE SODIUM
     Dosage: 1 DOSAGE FORM FOR EVERY 30 DAYS
     Route: 048
     Dates: start: 20210122
  6. WELLBUTRIN [Concomitant]
     Active Substance: BUPROPION HYDROCHLORIDE
     Indication: PRODUCT USED FOR UNKNOWN INDICATION
     Dosage: 1 DOSAGE FORM, ONCE A DAY AT BREAKFAST
     Route: 065

REACTIONS (15)
  - Bone pain [Not Recovered/Not Resolved]
  - Insomnia [Not Recovered/Not Resolved]
  - Gait inability [Not Recovered/Not Resolved]
  - Muscle twitching [Not Recovered/Not Resolved]
  - Hypoaesthesia [Not Recovered/Not Resolved]
  - Pain [Not Recovered/Not Resolved]
  - Pain in extremity [Not Recovered/Not Resolved]
  - Arthralgia [Not Recovered/Not Resolved]
  - Muscle spasms [Not Recovered/Not Resolved]
  - Groin pain [Not Recovered/Not Resolved]
  - Muscle contracture [Not Recovered/Not Resolved]
  - Vasospasm [Not Recovered/Not Resolved]
  - Product dose omission issue [Unknown]
  - Dyskinesia [Not Recovered/Not Resolved]
  - Myoclonus [Not Recovered/Not Resolved]
